FAERS Safety Report 19934413 (Version 1)
Quarter: 2021Q4

REPORT INFORMATION
  Report Type: Spontaneous
  Country: US (occurrence: US)
  Receive Date: 20211008
  Receipt Date: 20211008
  Transmission Date: 20220303
  Serious: No
  Sender: FDA-Public Use
  Company Number: US-LEO PHARMA-338773

PATIENT
  Age: 30 Year
  Sex: Female

DRUGS (6)
  1. FINACEA [Suspect]
     Active Substance: AZELAIC ACID
     Indication: Acne
     Dates: start: 20210911
  2. FINACEA [Suspect]
     Active Substance: AZELAIC ACID
     Indication: Acne
     Dates: start: 20210911
  3. EPIDUO FORTE [Concomitant]
     Active Substance: ADAPALENE\BENZOYL PEROXIDE
     Indication: Product used for unknown indication
  4. CYCLOBENZAPRINE [Concomitant]
     Active Substance: CYCLOBENZAPRINE
     Indication: Muscle spasms
     Route: 048
  5. CLONAZEPAM [Concomitant]
     Active Substance: CLONAZEPAM
     Indication: Anxiety
     Route: 048
  6. Linisopril/hydrochlorothiazide [Concomitant]
     Indication: Hypertension
     Dosage: DOSAGE : 20/12.5 MG
     Route: 048

REACTIONS (2)
  - Product use in unapproved indication [Unknown]
  - Blister [Unknown]

NARRATIVE: CASE EVENT DATE: 20210913
